FAERS Safety Report 8506280-5 (Version None)
Quarter: 2012Q3

REPORT INFORMATION
  Report Type: 
  Country: None (occurrence: None)
  Receive Date: 20120706
  Receipt Date: 20120706
  Transmission Date: 20120928
  Serious: Yes (Hospitalization)
  Sender: FDA-Public Use
  Company Number: None

PATIENT
  Sex: Female
  Weight: 89.2 kg

DRUGS (1)
  1. CISPLATIN [Suspect]
     Dosage: 200MG/M2 OVER 5 WEEKS

REACTIONS (6)
  - HYPOMAGNESAEMIA [None]
  - MUCOSAL INFLAMMATION [None]
  - HYPOKALAEMIA [None]
  - WEIGHT DECREASED [None]
  - NEUTROPHIL COUNT DECREASED [None]
  - DEHYDRATION [None]
